FAERS Safety Report 7238442-1 (Version None)
Quarter: 2011Q1

REPORT INFORMATION
  Report Type: 
  Country: None (occurrence: None)
  Receive Date: 20110121
  Receipt Date: 20110110
  Transmission Date: 20110831
  Serious: Yes (Hospitalization)
  Sender: FDA-Public Use
  Company Number: US-MERCK-1012USA02472

PATIENT
  Age: 62 Year
  Sex: Female

DRUGS (8)
  1. LOTREL [Concomitant]
     Route: 065
  2. ZETIA [Concomitant]
     Route: 048
  3. TOPROL-XL [Concomitant]
     Route: 065
  4. COUMADIN [Concomitant]
     Route: 065
  5. SYNTHROID [Concomitant]
     Route: 065
  6. FUROSEMIDE [Concomitant]
     Route: 065
  7. PROMETRIUM [Concomitant]
     Route: 065
  8. ZOCOR [Suspect]
     Indication: BLOOD CHOLESTEROL
     Route: 048
     Dates: start: 20030101, end: 20030101

REACTIONS (3)
  - LIVER DISORDER [None]
  - CARDIAC DISORDER [None]
  - CARDIAC VALVE DISEASE [None]
